FAERS Safety Report 13153745 (Version 1)
Quarter: 2017Q1

REPORT INFORMATION
  Report Type: Spontaneous
  Country: US (occurrence: US)
  Receive Date: 20170126
  Receipt Date: 20170126
  Transmission Date: 20170428
  Serious: Yes (Other)
  Sender: FDA-Public Use
  Company Number: US-MALLINCKRODT-T201606163

PATIENT
  Age: 36 Year
  Sex: Female
  Weight: 132 kg

DRUGS (4)
  1. H.P. ACTHAR [Suspect]
     Active Substance: CORTICOTROPIN
     Indication: ANKYLOSING SPONDYLITIS
  2. H.P. ACTHAR [Suspect]
     Active Substance: CORTICOTROPIN
     Indication: RHEUMATOID ARTHRITIS
     Dosage: 40 UNITS ONCE DAILY
     Route: 058
  3. H.P. ACTHAR [Suspect]
     Active Substance: CORTICOTROPIN
     Indication: PSORIATIC ARTHROPATHY
     Dosage: UNK
     Route: 058
     Dates: start: 20161012, end: 20161122
  4. H.P. ACTHAR [Suspect]
     Active Substance: CORTICOTROPIN
     Indication: POLYARTHRITIS
     Dosage: 80 UNITS / ML EACH DAY
     Route: 058
     Dates: start: 20161108, end: 20161122

REACTIONS (9)
  - Abdominal distension [Recovering/Resolving]
  - Weight increased [Unknown]
  - Blood pressure increased [Recovering/Resolving]
  - Joint effusion [Unknown]
  - Abdominal pain [Recovering/Resolving]
  - Oedema peripheral [Recovering/Resolving]
  - Swelling [Unknown]
  - Localised oedema [Recovering/Resolving]
  - Pyrexia [Recovered/Resolved]

NARRATIVE: CASE EVENT DATE: 2016
